FAERS Safety Report 7332467-3 (Version None)
Quarter: 2011Q1

REPORT INFORMATION
  Report Type: 
  Country: None (occurrence: None)
  Receive Date: 20110304
  Receipt Date: 20110302
  Transmission Date: 20110831
  Serious: Yes (Death)
  Sender: FDA-Public Use
  Company Number: CN-ROCHE-762835

PATIENT
  Sex: Male

DRUGS (3)
  1. CYCLOSPORINE [Concomitant]
     Indication: RENAL TRANSPLANT
  2. MYCOPHENOLATE MOFETIL [Suspect]
     Indication: RENAL TRANSPLANT
     Route: 065
     Dates: start: 20100326
  3. STEROID NOS [Concomitant]
     Indication: RENAL TRANSPLANT

REACTIONS (1)
  - DEATH [None]
